FAERS Safety Report 5028037-2 (Version None)
Quarter: 2006Q2

REPORT INFORMATION
  Report Type: 
  Country: None (occurrence: None)
  Receive Date: 20060501
  Receipt Date: 20060206
  Transmission Date: 20061013
  Serious: No
  Sender: FDA-Public Use
  Company Number: 200611297US

PATIENT
  Age: 44 Year
  Sex: Male

DRUGS (1)
  1. KETEK [Suspect]
     Dates: start: 20060113

REACTIONS (1)
  - VISION BLURRED [None]
